FAERS Safety Report 19502284 (Version 2)
Quarter: 2023Q2

REPORT INFORMATION
  Report Type: Spontaneous
  Country: US (occurrence: US)
  Receive Date: 20210707
  Receipt Date: 20230628
  Transmission Date: 20230722
  Serious: Yes (Hospitalization)
  Sender: FDA-Public Use
  Company Number: US-VIELABIO-VIE-2021-US-000084

PATIENT
  Sex: Female

DRUGS (1)
  1. UPLIZNA [Suspect]
     Active Substance: INEBILIZUMAB-CDON
     Indication: Neuromyelitis optica spectrum disorder
     Dosage: 100 MILLIGRAM PER 10 MILLILITRE
     Route: 065

REACTIONS (1)
  - Neuromyelitis optica spectrum disorder [Unknown]
